FAERS Safety Report 7969521-9 (Version None)
Quarter: 2011Q4

REPORT INFORMATION
  Report Type: 
  Country: None (occurrence: None)
  Receive Date: 20111212
  Receipt Date: 20111208
  Transmission Date: 20120403
  Serious: No
  Sender: FDA-Public Use
  Company Number: US-PFIZER INC-2011173081

PATIENT
  Sex: Male

DRUGS (2)
  1. PRISTIQ [Suspect]
     Dosage: UNK
     Route: 048
  2. PRISTIQ [Suspect]
     Dosage: 50 MG
     Route: 048

REACTIONS (2)
  - DRY MOUTH [None]
  - URINE FLOW DECREASED [None]
